FAERS Safety Report 6196433-6 (Version None)
Quarter: 2009Q2

REPORT INFORMATION
  Report Type: 
  Country: None (occurrence: None)
  Receive Date: 20090518
  Receipt Date: 20090518
  Transmission Date: 20091009
  Serious: Yes (Life-Threatening)
  Sender: FDA-Public Use
  Company Number: None

PATIENT
  Age: 49 Year
  Sex: Female
  Weight: 59.8748 kg

DRUGS (1)
  1. NEURONTIN [Suspect]
     Indication: MIGRAINE
     Dosage: 700 3 X DAILY PO
     Route: 048
     Dates: start: 20090303, end: 20090503

REACTIONS (9)
  - ANXIETY [None]
  - DEPRESSION [None]
  - DIZZINESS [None]
  - HYPERHIDROSIS [None]
  - MANIA [None]
  - NAUSEA [None]
  - PARANOIA [None]
  - SUICIDAL IDEATION [None]
  - THINKING ABNORMAL [None]
